FAERS Safety Report 4599118-2 (Version None)
Quarter: 2005Q1

REPORT INFORMATION
  Report Type: 
  Country: None (occurrence: None)
  Receive Date: 20050302
  Receipt Date: 20050222
  Transmission Date: 20050727
  Serious: Yes (Hospitalization, Other)
  Sender: FDA-Public Use
  Company Number: 2005-02-0090

PATIENT
  Age: 45 Year
  Sex: Male
  Weight: 84 kg

DRUGS (3)
  1. INTRON A [Suspect]
     Indication: MALIGNANT MELANOMA
     Dosage: 20 MIU/M^2 SUBCUTANEOUS
     Route: 058
     Dates: start: 20050110, end: 20050201
  2. ZOFRAN [Concomitant]
  3. PARACETAMOL [Concomitant]

REACTIONS (4)
  - ERYSIPELAS [None]
  - PLEURISY [None]
  - PNEUMOCYSTIS JIROVECI PNEUMONIA [None]
  - PNEUMONIA [None]
